FAERS Safety Report 7042187-0 (Version None)
Quarter: 2010Q4

REPORT INFORMATION
  Report Type: 
  Country: None (occurrence: None)
  Receive Date: 20101013
  Receipt Date: 20100215
  Transmission Date: 20110411
  Serious: No
  Sender: FDA-Public Use
  Company Number: US-ASTRAZENECA-2010SE06723

PATIENT
  Age: 59 Year
  Sex: Male

DRUGS (3)
  1. SYMBICORT [Suspect]
     Indication: BRONCHITIS CHRONIC
     Dosage: 160/4.5 MCG UNKNOWN FREQUENCY
     Route: 055
  2. SPIRIVA [Concomitant]
  3. ALBUTEROL SULFATE [Concomitant]

REACTIONS (2)
  - ABDOMINAL PAIN UPPER [None]
  - MUSCLE SPASMS [None]
